FAERS Safety Report 5349661-3 (Version None)
Quarter: 2007Q2

REPORT INFORMATION
  Report Type: 
  Country: None (occurrence: None)
  Receive Date: 20070607
  Receipt Date: 20070530
  Transmission Date: 20071010
  Serious: Yes (Other)
  Sender: FDA-Public Use
  Company Number: JP-BRISTOL-MYERS SQUIBB COMPANY-13758230

PATIENT
  Age: 54 Year
  Sex: Male

DRUGS (4)
  1. ARIPIPRAZOLE [Suspect]
     Indication: HALLUCINATION
     Route: 048
     Dates: start: 20070323
  2. ZOPICLONE [Concomitant]
     Indication: INSOMNIA
     Route: 048
     Dates: start: 20070323
  3. ETIZOLAM [Concomitant]
     Indication: INSOMNIA
     Route: 048
     Dates: start: 20070323
  4. MAGNESIUM OXIDE [Concomitant]
     Indication: CONSTIPATION
     Route: 048

REACTIONS (1)
  - WATER INTOXICATION [None]
